FAERS Safety Report 8597774-5 (Version None)
Quarter: 2012Q3

REPORT INFORMATION
  Report Type: 
  Country: None (occurrence: None)
  Receive Date: 20120816
  Receipt Date: 20120813
  Transmission Date: 20120928
  Serious: Yes (Other)
  Sender: FDA-Public Use
  Company Number: PHHY2012BR061722

PATIENT
  Sex: Female

DRUGS (1)
  1. CLOZAPINE [Suspect]
     Dosage: 100 MG, UNK

REACTIONS (3)
  - MOOD SWINGS [None]
  - SCHIZOPHRENIA [None]
  - DEPRESSION [None]
